FAERS Safety Report 5724618-9 (Version None)
Quarter: 2008Q2

REPORT INFORMATION
  Report Type: 
  Country: None (occurrence: None)
  Receive Date: 20080430
  Receipt Date: 20080430
  Transmission Date: 20081010
  Serious: No
  Sender: FDA-Public Use
  Company Number: None

PATIENT
  Age: 58 Year
  Sex: Male
  Weight: 118.3 kg

DRUGS (13)
  1. ZOLPIDEM [Suspect]
     Indication: SOMNOLENCE
     Dosage: 5 MG PO 22:00
     Route: 048
     Dates: start: 20071210
  2. UNASYN [Concomitant]
  3. DOCUSATE/SENNA [Concomitant]
  4. HEPARIN [Concomitant]
  5. BISACODYL SUPP [Concomitant]
  6. ATENOLOL [Concomitant]
  7. RANITIDINE [Concomitant]
  8. TYLENOL [Concomitant]
  9. ZOLPIDEM [Concomitant]
  10. ALBUTEROL [Concomitant]
  11. EPIDURAL [Concomitant]
  12. BUPIVACAINE [Concomitant]
  13. MOM [Concomitant]

REACTIONS (2)
  - DISORIENTATION [None]
  - SUICIDAL IDEATION [None]
